FAERS Safety Report 10256528 (Version 1)
Quarter: 2014Q2

REPORT INFORMATION
  Report Type: Report from Study
  Country: DK (occurrence: DK)
  Receive Date: 20140624
  Receipt Date: 20140624
  Transmission Date: 20141212
  Serious: Yes (Hospitalization)
  Sender: FDA-Public Use
  Company Number: DK-JNJFOC-20130601315

PATIENT
  Age: 71 Year
  Sex: Male
  Weight: 76 kg

DRUGS (12)
  1. RIVAROXABAN [Suspect]
     Indication: THROMBOSIS PROPHYLAXIS
     Route: 048
     Dates: start: 20130519
  2. RIVAROXABAN [Suspect]
     Indication: THROMBOSIS PROPHYLAXIS
     Route: 048
     Dates: start: 20130506, end: 20130514
  3. RIVAROXABAN [Suspect]
     Indication: DEEP VEIN THROMBOSIS
     Route: 048
     Dates: start: 20130506, end: 20130514
  4. RIVAROXABAN [Suspect]
     Indication: DEEP VEIN THROMBOSIS
     Route: 048
     Dates: start: 20130519
  5. PRIMPERAN [Concomitant]
     Route: 065
     Dates: start: 201208
  6. CALCIUM [Concomitant]
     Route: 065
     Dates: start: 201105
  7. INNOHEP [Concomitant]
     Dosage: 13.5 10*3 IU DAILY
     Route: 065
     Dates: start: 20121017
  8. ZOLADEX [Concomitant]
     Route: 065
     Dates: start: 20121206
  9. PANTOPRAZOLE [Concomitant]
     Route: 065
     Dates: start: 20130111
  10. WARFARIN [Concomitant]
     Route: 065
     Dates: start: 20121017
  11. IRON SUPPLEMENT [Concomitant]
     Route: 065
     Dates: start: 201206
  12. VITAMIN D [Concomitant]
     Route: 065
     Dates: start: 201105

REACTIONS (4)
  - Pneumonia [Recovered/Resolved]
  - Deep vein thrombosis [Recovering/Resolving]
  - Acute coronary syndrome [Recovered/Resolved]
  - Post procedural infection [Recovered/Resolved]
